FAERS Safety Report 9409609 (Version 1)
Quarter: 2013Q3

REPORT INFORMATION
  Report Type: Spontaneous
  Country: US (occurrence: None)
  Receive Date: 20130716
  Receipt Date: 20130716
  Transmission Date: 20140515
  Serious: Yes (Hospitalization, Other)
  Sender: FDA-Public Use
  Company Number: IPC201307-000266

PATIENT
  Age: 60 Year
  Sex: Female
  Weight: 49.89 kg

DRUGS (3)
  1. FUROSEMIDE [Suspect]
     Indication: DIURETIC THERAPY
  2. FLOLAN EPOPROSTENOL SODIUM) (EPOPROSTENOL SODIUM) [Concomitant]
  3. GEMIFIBROZIL (GEMIFIBROZIL) (GEMIFIBROZIL) [Concomitant]

REACTIONS (4)
  - Atrial fibrillation [None]
  - Dyspnoea [None]
  - Fluid retention [None]
  - Drug ineffective [None]
